FAERS Safety Report 9506438 (Version 1)
Quarter: 2013Q1

REPORT INFORMATION
  Report Type: Spontaneous
  Country: US (occurrence: None)
  Receive Date: 20130301
  Receipt Date: 20130301
  Transmission Date: 20140127
  Serious: Yes (Other)
  Sender: FDA-Public Use
  Company Number: US-JNJFOC-20120205522

PATIENT
  Age: 59 Year
  Sex: Male
  Weight: 64.41 kg

DRUGS (8)
  1. IBUPROFEN (IBUPROFEN) [Suspect]
     Indication: PRODUCT USED FOR UNKNOWN INDICATION
  2. NAPROXEN (NAPROXEN) [Suspect]
     Indication: PRODUCT USED FOR UNKNOWN INDICATION
  3. BENADRYL (DIPHENHYDRAMINE HYDROCHLORIDE) [Concomitant]
  4. OMEPRAZOLE [Concomitant]
  5. ANTI-HYPERSENSITIVE [Concomitant]
  6. CELEBREX [Concomitant]
  7. CYMBALTA (DULOXETINE HYDROCHLORIDE) [Concomitant]
  8. GLUCOMANNAN [Concomitant]

REACTIONS (1)
  - Gastric ulcer [None]
